FAERS Safety Report 12846729 (Version 6)
Quarter: 2017Q2

REPORT INFORMATION
  Report Type: Spontaneous
  Country: US (occurrence: US)
  Receive Date: 20161014
  Receipt Date: 20170508
  Transmission Date: 20170830
  Serious: Yes (Hospitalization, Other)
  Sender: FDA-Public Use
  Company Number: US-PFIZER INC-2016476847

PATIENT
  Age: 77 Year
  Sex: Male
  Weight: 86.18 kg

DRUGS (24)
  1. COMPAZINE [Concomitant]
     Active Substance: PROCHLORPERAZINE MALEATE
     Dosage: UNK
  2. LISINOPRIL. [Concomitant]
     Active Substance: LISINOPRIL
     Dosage: 10 MG, 1X/DAY (20MG ONE HALF OF A TABLET BY MOUTH ONCE A DAY)
     Route: 048
  3. LOVENOX [Concomitant]
     Active Substance: ENOXAPARIN SODIUM
     Dosage: 135 MG, DAILY (WITH SUTENT)
  4. BYSTOLIC [Concomitant]
     Active Substance: NEBIVOLOL HYDROCHLORIDE
     Indication: CARDIAC DISORDER
     Dosage: 5 MG, 1X/DAY
     Route: 048
  5. PRILOSEC [Concomitant]
     Active Substance: OMEPRAZOLE MAGNESIUM
     Dosage: UNK
  6. ZETIA [Concomitant]
     Active Substance: EZETIMIBE
     Indication: CARDIAC DISORDER
     Dosage: 10 MG, 1X/DAY
     Route: 048
  7. OMEPRAZOLE. [Concomitant]
     Active Substance: OMEPRAZOLE
     Indication: DYSPEPSIA
     Dosage: 20 MG, 1X/DAY
     Route: 048
  8. TRIMIX [Concomitant]
     Active Substance: ALPROSTADIL\PAPAVERINE\PHENTOLAMINE
     Indication: ERECTILE DYSFUNCTION
     Dosage: UNK UNK, AS NEEDED[PAPAVERINE: 30 MG]- [PHENTOLAMINE: 2 MG]- [ALPROSTADIL: 40MG]/2.5 ML
  9. FOLIC ACID. [Concomitant]
     Active Substance: FOLIC ACID
     Indication: ORAL HERPES
     Dosage: UNK, 1X/DAY
     Route: 048
  10. LISINOPRIL. [Concomitant]
     Active Substance: LISINOPRIL
     Indication: CARDIAC DISORDER
     Dosage: 20 MG, 2X/DAY
  11. SIMVASTATIN. [Concomitant]
     Active Substance: SIMVASTATIN
     Indication: CARDIAC DISORDER
     Dosage: 20 MG, 1X/DAY
     Route: 048
  12. TEMAZEPAM. [Concomitant]
     Active Substance: TEMAZEPAM
     Indication: SLEEP DISORDER
     Dosage: 30 MG, 1X/DAY
     Route: 048
  13. ENOXAPARIN SODIUM. [Concomitant]
     Active Substance: ENOXAPARIN SODIUM
     Indication: ANTICOAGULANT THERAPY
     Dosage: 90 MG, 2X/DAY
     Route: 058
  14. SUTENT [Suspect]
     Active Substance: SUNITINIB MALATE
     Indication: RENAL CELL CARCINOMA
     Dosage: 38.5 MG, UNK
  15. SUTENT [Suspect]
     Active Substance: SUNITINIB MALATE
     Dosage: 25 MG, CYCLIC (28 DAYS ON/14 DAYS OFF)
  16. SUTENT [Suspect]
     Active Substance: SUNITINIB MALATE
     Dosage: 37.5 MG, UNK
  17. SUTENT [Suspect]
     Active Substance: SUNITINIB MALATE
     Dosage: 20 MG, UNK
  18. LOVENOX [Concomitant]
     Active Substance: ENOXAPARIN SODIUM
     Indication: ANTICOAGULANT THERAPY
     Dosage: UNK
  19. SUTENT [Suspect]
     Active Substance: SUNITINIB MALATE
     Indication: METASTATIC RENAL CELL CARCINOMA
     Dosage: 50 MG, CYCLIC (ONCE A DAYFOR 28 DAYS, THEN 12 DAYS TO RECUPERATE)
     Route: 048
     Dates: start: 201603
  20. COQ10 [Concomitant]
     Active Substance: UBIDECARENONE
     Indication: CARDIAC DISORDER
     Dosage: UNK, 1X/DAY
     Route: 048
  21. SUTENT [Suspect]
     Active Substance: SUNITINIB MALATE
     Dosage: 25 MG, CYCLIC(NCE A DAY FOR 28 DAYS AND THEN TWO WEEKS OFF )
     Route: 048
     Dates: start: 2016, end: 201704
  22. CALCIUM [Concomitant]
     Active Substance: CALCIUM
     Dosage: UNK
  23. MAGNESIUM [Concomitant]
     Active Substance: MAGNESIUM
     Dosage: UNK
  24. ENOXAPARIN SODIUM. [Concomitant]
     Active Substance: ENOXAPARIN SODIUM
     Indication: THROMBOSIS
     Dosage: 135, SHOT IN BELLY, CUT DOWN THE DOSE FROM 180MG TO THE CURRENT 135MG)

REACTIONS (24)
  - Constipation [Recovering/Resolving]
  - Asthenia [Unknown]
  - Pulmonary thrombosis [Unknown]
  - Epistaxis [Recovering/Resolving]
  - Diarrhoea [Recovering/Resolving]
  - Ageusia [Unknown]
  - Neoplasm progression [Not Recovered/Not Resolved]
  - Musculoskeletal stiffness [Recovering/Resolving]
  - Fatigue [Recovering/Resolving]
  - Rash macular [Unknown]
  - Thrombosis [Unknown]
  - Dysgeusia [Recovering/Resolving]
  - Influenza like illness [Recovering/Resolving]
  - Influenza [Unknown]
  - Scab [Unknown]
  - Loss of consciousness [Unknown]
  - Headache [Recovering/Resolving]
  - Decreased appetite [Recovering/Resolving]
  - Brain oedema [Unknown]
  - Asthenia [Recovering/Resolving]
  - Haemorrhage [Unknown]
  - Myalgia [Recovering/Resolving]
  - Hypokinesia [Recovering/Resolving]
  - Rhinorrhoea [Recovering/Resolving]

NARRATIVE: CASE EVENT DATE: 2016
